FAERS Safety Report 7969280-X (Version None)
Quarter: 2011Q4

REPORT INFORMATION
  Report Type: 
  Country: None (occurrence: None)
  Receive Date: 20111209
  Receipt Date: 20111207
  Transmission Date: 20120403
  Serious: Yes (Hospitalization)
  Sender: FDA-Public Use
  Company Number: US-ROCHE-1015533

PATIENT
  Sex: Female
  Weight: 68.826 kg

DRUGS (6)
  1. ZOFRAN [Concomitant]
  2. OXALIPLATIN [Suspect]
     Indication: OESOPHAGEAL ADENOCARCINOMA METASTATIC
     Route: 042
     Dates: start: 20111020, end: 20111110
  3. XELODA [Suspect]
     Indication: OESOPHAGEAL ADENOCARCINOMA METASTATIC
     Route: 048
     Dates: start: 20111020, end: 20111118
  4. AVASTIN [Suspect]
     Indication: OESOPHAGEAL ADENOCARCINOMA METASTATIC
     Route: 042
     Dates: start: 20111020, end: 20111110
  5. PRILOSEC [Concomitant]
  6. COMPAZINE [Concomitant]

REACTIONS (1)
  - WOUND COMPLICATION [None]
